FAERS Safety Report 14738415 (Version 1)
Quarter: 2018Q2

REPORT INFORMATION
  Report Type: Spontaneous
  Country: US (occurrence: US)
  Receive Date: 20180409
  Receipt Date: 20180409
  Transmission Date: 20180711
  Serious: No
  Sender: FDA-Public Use
  Company Number: US-IPSEN BIOPHARMACEUTICALS, INC.-2018-04184

PATIENT
  Age: 59 Year
  Sex: Female

DRUGS (6)
  1. DYSPORT [Suspect]
     Active Substance: ABOBOTULINUMTOXINA
     Indication: SKIN COSMETIC PROCEDURE
     Dosage: NOT REPORTED
     Route: 065
     Dates: start: 20170519, end: 20170519
  2. SCULPTRA AESTHETIC [Suspect]
     Active Substance: POLYLACTIDE, L-
     Dates: start: 20161108, end: 20161108
  3. KEFLEX [Concomitant]
     Active Substance: CEPHALEXIN
  4. TRIAMTERENE AND HYDROCHLOROTHIAZIDE [Concomitant]
     Active Substance: HYDROCHLOROTHIAZIDE\TRIAMTERENE
  5. SCULPTRA AESTHETIC [Suspect]
     Active Substance: POLYLACTIDE, L-
     Indication: SKIN COSMETIC PROCEDURE
     Dates: start: 20160906, end: 20160906
  6. CARAFATE [Concomitant]
     Active Substance: SUCRALFATE

REACTIONS (1)
  - Granuloma skin [Recovering/Resolving]

NARRATIVE: CASE EVENT DATE: 201711
